FAERS Safety Report 18059251 (Version 2)
Quarter: 2020Q4

REPORT INFORMATION
  Report Type: Spontaneous
  Country: US (occurrence: US)
  Receive Date: 20200723
  Receipt Date: 20201130
  Transmission Date: 20210113
  Serious: Yes (Other)
  Sender: FDA-Public Use
  Company Number: US-PFIZER INC-2020281254

PATIENT
  Age: 70 Year
  Sex: Male

DRUGS (1)
  1. LYRICA [Suspect]
     Active Substance: PREGABALIN
     Dosage: 300 MG, DAILY [(TAKE 1 CAP IN THE MORNING 1 CAP IN THE AFTERNOON AND 2 CAPS @ BEDTIME)]

REACTIONS (2)
  - Neoplasm malignant [Unknown]
  - Pain [Unknown]
